FAERS Safety Report 4453257-5 (Version None)
Quarter: 2004Q3

REPORT INFORMATION
  Report Type: 
  Country: None (occurrence: None)
  Receive Date: 20040920
  Receipt Date: 20040913
  Transmission Date: 20050211
  Serious: Yes (Other)
  Sender: FDA-Public Use
  Company Number: 200419053GDDC

PATIENT
  Sex: 0

DRUGS (2)
  1. ARAVA [Suspect]
     Dosage: DOSE: UNK
  2. SULFASALAZINE [Concomitant]
     Dosage: DOSE: UNK

REACTIONS (1)
  - PORPHYRIA ACUTE [None]
